FAERS Safety Report 7085100-2 (Version None)
Quarter: 2010Q4

REPORT INFORMATION
  Report Type: 
  Country: None (occurrence: None)
  Receive Date: 20101027
  Receipt Date: 20101020
  Transmission Date: 20110411
  Serious: Yes (Other)
  Sender: FDA-Public Use
  Company Number: 2010SP056286

PATIENT

DRUGS (2)
  1. RIBAVIRIN [Suspect]
     Indication: LIVER DISORDER
  2. PEG INTERFERON (INTERFERON) [Suspect]
     Indication: LIVER DISORDER

REACTIONS (1)
  - MENINGITIS [None]
